FAERS Safety Report 14587984 (Version 17)
Quarter: 2019Q2

REPORT INFORMATION
  Report Type: Spontaneous
  Country: NZ (occurrence: NZ)
  Receive Date: 20180301
  Receipt Date: 20190619
  Transmission Date: 20190711
  Serious: Yes (Life-Threatening, Hospitalization, Other)
  Sender: FDA-Public Use
  Company Number: NZ-MYLANLABS-2016M1035198

PATIENT
  Age: 44 Year
  Sex: Male
  Weight: 74 kg

DRUGS (7)
  1. CLOZARIL [Suspect]
     Active Substance: CLOZAPINE
     Dosage: 350 MG, HS
     Route: 048
     Dates: start: 20130114
  2. CLOZARIL [Suspect]
     Active Substance: CLOZAPINE
     Dosage: 500 MG, HS
     Route: 048
     Dates: start: 201301
  3. OLANZAPINE. [Concomitant]
     Active Substance: OLANZAPINE
     Indication: PRODUCT USED FOR UNKNOWN INDICATION
     Dosage: UNK
  4. CLOZARIL [Suspect]
     Active Substance: CLOZAPINE
     Indication: SCHIZOPHRENIA
     Dosage: UNK
     Route: 048
  5. CLOZARIL [Suspect]
     Active Substance: CLOZAPINE
     Dosage: UNK
     Route: 048
     Dates: start: 20130125
  6. CLOZARIL [Suspect]
     Active Substance: CLOZAPINE
     Dosage: 500 MG, HS
     Route: 048
     Dates: start: 20130819
  7. METAMUCIL [Concomitant]
     Active Substance: PLANTAGO SEED
     Indication: CONSTIPATION
     Dosage: 6 GRAM, PRN
     Dates: start: 20130819

REACTIONS (12)
  - Disease progression [Not Recovered/Not Resolved]
  - Lymphoproliferative disorder [Not Recovered/Not Resolved]
  - Anosognosia [Unknown]
  - Neutrophil count decreased [Recovered/Resolved]
  - Hyperhidrosis [Unknown]
  - Negativism [Unknown]
  - General physical health deterioration [Unknown]
  - Chronic lymphocytic leukaemia [Not Recovered/Not Resolved]
  - Derealisation [Unknown]
  - Delusion of grandeur [Unknown]
  - Agitation [Unknown]
  - Paranoia [Unknown]

NARRATIVE: CASE EVENT DATE: 20130306
